FAERS Safety Report 12118358 (Version 2)
Quarter: 2016Q1

REPORT INFORMATION
  Report Type: Spontaneous
  Country: US (occurrence: US)
  Receive Date: 20160226
  Receipt Date: 20160301
  Transmission Date: 20160526
  Serious: No
  Sender: FDA-Public Use
  Company Number: US-BAYER-2016-035955

PATIENT
  Sex: Female

DRUGS (1)
  1. CLARITIN [Suspect]
     Active Substance: LORATADINE

REACTIONS (5)
  - Middle insomnia [None]
  - Middle insomnia [None]
  - Ocular hyperaemia [None]
  - Wheezing [None]
  - Nightmare [None]

NARRATIVE: CASE EVENT DATE: 20160221
